FAERS Safety Report 20151086 (Version 1)
Quarter: 2021Q4

REPORT INFORMATION
  Report Type: Spontaneous
  Country: US (occurrence: None)
  Receive Date: 20211204
  Receipt Date: 20211204
  Transmission Date: 20220303
  Serious: Yes (Hospitalization)
  Sender: FDA-Public Use
  Company Number: None

PATIENT
  Age: 87 Year
  Sex: Male
  Weight: 78.93 kg

DRUGS (2)
  1. WARFARIN [Suspect]
     Active Substance: WARFARIN
     Indication: Atrial fibrillation
     Dates: start: 20201009, end: 20210804
  2. WARFARIN [Suspect]
     Active Substance: WARFARIN
     Indication: Transient ischaemic attack

REACTIONS (10)
  - Asthenia [None]
  - Facial paralysis [None]
  - Dysarthria [None]
  - Dysarthria [None]
  - Lacunar infarction [None]
  - Blood pressure systolic increased [None]
  - Carotid arteriosclerosis [None]
  - Haemorrhage intracranial [None]
  - Transient ischaemic attack [None]
  - Cerebrovascular accident [None]

NARRATIVE: CASE EVENT DATE: 20210801
